FAERS Safety Report 9722150 (Version 1)
Quarter: 2013Q4

REPORT INFORMATION
  Report Type: Report from Study
  Country: RU (occurrence: RU)
  Receive Date: 20131202
  Receipt Date: 20131202
  Transmission Date: 20140711
  Serious: Yes (Other)
  Sender: FDA-Public Use
  Company Number: RU-ROCHE-1307222

PATIENT
  Age: 44 Year
  Sex: Female
  Weight: 45 kg

DRUGS (12)
  1. AVASTIN [Suspect]
     Indication: RECTAL CANCER
     Route: 042
     Dates: start: 20120511, end: 20120830
  2. AVASTIN [Suspect]
     Route: 042
     Dates: start: 20120830
  3. AVASTIN [Suspect]
     Route: 042
  4. XELODA [Suspect]
     Indication: RECTAL CANCER
     Dosage: 1-14 DAYS  WITH 7 DAY-BREAK
     Route: 048
     Dates: start: 20120511, end: 20120830
  5. XELODA [Suspect]
     Dosage: IN 2 ADMINISTRATIONS, 1-14 DAYS WITH 7 DAY-BREAK
     Route: 048
     Dates: start: 20130816, end: 201311
  6. XELODA [Suspect]
     Dosage: 1-14 DAYS
     Route: 048
     Dates: start: 201311
  7. 5-FU [Concomitant]
     Indication: RECTAL CANCER
     Dosage: 22 HOURS INFUSION 1-2 DAYS
     Route: 040
     Dates: start: 20120830
  8. 5-FU [Concomitant]
     Route: 040
     Dates: end: 20130423
  9. LEUCOVORIN [Concomitant]
     Indication: RECTAL CANCER
     Dosage: 2 HOURS 1-2 DAYS
     Route: 042
     Dates: start: 20120830, end: 20130423
  10. IRINOTECAN [Concomitant]
     Indication: RECTAL CANCER
     Dosage: 90 MINS 1 DAY
     Route: 042
     Dates: start: 20120830, end: 20130423
  11. IRINOTECAN [Concomitant]
     Dosage: 2 HOURS 1 DAY
     Route: 042
     Dates: start: 20130816
  12. IMODIUM [Concomitant]

REACTIONS (1)
  - Gastrointestinal disorder [Recovered/Resolved]
